FAERS Safety Report 10919211 (Version 1)
Quarter: 2015Q1

REPORT INFORMATION
  Report Type: Spontaneous
  Country: US (occurrence: None)
  Receive Date: 20150312
  Receipt Date: 20150312
  Transmission Date: 20150721
  Serious: Yes (Hospitalization)
  Sender: FDA-Public Use
  Company Number: 2015PL000028

PATIENT
  Age: 46 Year
  Sex: Male

DRUGS (4)
  1. PROLEUKIN [Suspect]
     Active Substance: ALDESLEUKIN
     Dates: start: 20150116
  2. SIROLIMUS. [Suspect]
     Active Substance: SIROLIMUS
     Indication: ACUTE LYMPHOCYTIC LEUKAEMIA
  3. TACROLIMUS (TACROLIMUS) [Suspect]
     Active Substance: TACROLIMUS
     Indication: ACUTE LYMPHOCYTIC LEUKAEMIA
  4. PROLEUKIN [Suspect]
     Active Substance: ALDESLEUKIN
     Indication: PROPHYLAXIS AGAINST GRAFT VERSUS HOST DISEASE
     Dates: start: 20150116

REACTIONS (9)
  - Ascites [None]
  - Scrotal oedema [None]
  - Urine output decreased [None]
  - Acute kidney injury [None]
  - Abdominal pain [None]
  - Vomiting [None]
  - Venoocclusive disease [None]
  - Portal vein thrombosis [None]
  - Nausea [None]

NARRATIVE: CASE EVENT DATE: 20150226
